FAERS Safety Report 7822823-9 (Version None)
Quarter: 2011Q4

REPORT INFORMATION
  Report Type: 
  Country: None (occurrence: None)
  Receive Date: 20111018
  Receipt Date: 20110310
  Transmission Date: 20120403
  Serious: No
  Sender: FDA-Public Use
  Company Number: US-ASTRAZENECA-2011SE13781

PATIENT
  Age: 57 Year
  Sex: Female

DRUGS (2)
  1. SYMBICORT [Suspect]
     Indication: ASTHMA
     Dosage: 80/4.5 MCG
     Route: 055
  2. SYMBICORT [Suspect]
     Indication: BRONCHITIS CHRONIC
     Dosage: 80/4.5 MCG
     Route: 055

REACTIONS (5)
  - WHEEZING [None]
  - STOMATITIS [None]
  - BREATH SOUNDS ABNORMAL [None]
  - WEIGHT INCREASED [None]
  - DYSPNOEA [None]
